FAERS Safety Report 6238690-3 (Version None)
Quarter: 2009Q2

REPORT INFORMATION
  Report Type: 
  Country: None (occurrence: None)
  Receive Date: 20090622
  Receipt Date: 20090609
  Transmission Date: 20091009
  Serious: Yes (Hospitalization)
  Sender: FDA-Public Use
  Company Number: FR-ELI_LILLY_AND_COMPANY-FR200903005163

PATIENT
  Age: 77 Year
  Sex: Female

DRUGS (6)
  1. ZYPREXA [Suspect]
     Indication: BIPOLAR DISORDER
     Dosage: 5 MG, 2/D
     Route: 048
     Dates: start: 20070101, end: 20090301
  2. ZYPREXA [Suspect]
     Dosage: 5 MG, 2/D
     Route: 048
     Dates: start: 20090401, end: 20090101
  3. ANAFRANIL [Concomitant]
     Indication: BIPOLAR DISORDER
     Dosage: 75 MG, DAILY (1/D)
     Route: 048
  4. XANAX [Concomitant]
     Indication: ANXIETY
     Dosage: 1.5 MG, DAILY (1/D)
     Route: 048
  5. LASIX [Concomitant]
     Dosage: 40 MG, DAILY (1/D)
     Route: 048
  6. DIFFU K [Concomitant]
     Dosage: 600 MG, DAILY (1/D)
     Route: 048

REACTIONS (4)
  - ANAEMIA [None]
  - DEHYDRATION [None]
  - HIP ARTHROPLASTY [None]
  - NEUROLEPTIC MALIGNANT SYNDROME [None]
